FAERS Safety Report 21487183 (Version 2)
Quarter: 2022Q4

REPORT INFORMATION
  Report Type: Spontaneous
  Country: IT (occurrence: US)
  Receive Date: 20221020
  Receipt Date: 20221124
  Transmission Date: 20230112
  Serious: Yes (Death, Hospitalization, Disabling, Other)
  Sender: FDA-Public Use
  Company Number: 2022A350758

PATIENT
  Age: 75 Year
  Sex: Female

DRUGS (1)
  1. ANDEXANET ALFA [Suspect]
     Active Substance: ANDEXANET ALFA
     Indication: Anticoagulant therapy
     Dosage: DOSE OF ANDEXANET LOW
     Route: 040

REACTIONS (7)
  - Cerebrovascular disorder [Fatal]
  - Immobilisation syndrome [Fatal]
  - Sepsis [Unknown]
  - Infection [Unknown]
  - Physical disability [Unknown]
  - Motor dysfunction [Unknown]
  - Nervous system disorder [Unknown]
